FAERS Safety Report 24215921 (Version 1)
Quarter: 2024Q3

REPORT INFORMATION
  Report Type: Spontaneous
  Country: US (occurrence: None)
  Receive Date: 20240816
  Receipt Date: 20240816
  Transmission Date: 20241016
  Serious: No
  Sender: OREXO
  Company Number: US-ARIS GLOBAL-ORE202311-000049

PATIENT
  Sex: Male

DRUGS (1)
  1. ZUBSOLV [Suspect]
     Active Substance: BUPRENORPHINE HYDROCHLORIDE\NALOXONE HYDROCHLORIDE
     Indication: Drug detoxification
     Dosage: UNKNOWN
     Route: 065

REACTIONS (4)
  - Burning sensation [Unknown]
  - Nausea [Unknown]
  - Vomiting [Unknown]
  - Allergic reaction to excipient [Unknown]

NARRATIVE: CASE EVENT DATE: 20230101
